FAERS Safety Report 8427033-2 (Version None)
Quarter: 2012Q2

REPORT INFORMATION
  Report Type: 
  Country: None (occurrence: None)
  Receive Date: 20120611
  Receipt Date: 20120606
  Transmission Date: 20120825
  Serious: Yes (Hospitalization)
  Sender: FDA-Public Use
  Company Number: US-ROCHE-1076459

PATIENT
  Sex: Male
  Weight: 81.72 kg

DRUGS (1)
  1. XELODA [Suspect]
     Indication: OESOPHAGEAL CARCINOMA
     Route: 048
     Dates: start: 20120419, end: 20120516

REACTIONS (2)
  - DEHYDRATION [None]
  - PANCREATITIS [None]
